FAERS Safety Report 8964414 (Version 1)
Quarter: 2012Q4

REPORT INFORMATION
  Report Type: 
  Country: US (occurrence: US)
  Receive Date: 20121214
  Receipt Date: 20121214
  Transmission Date: 20130627
  Serious: No
  Sender: FDA-Public Use
  Company Number: US-GLAXOSMITHKLINE-A0984594A

PATIENT
  Age: 70 Year
  Sex: Male

DRUGS (4)
  1. AVODART [Suspect]
     Indication: PROSTATOMEGALY
     Dosage: 1CAP Per day
     Route: 048
     Dates: start: 2007
  2. NEXIUM [Concomitant]
  3. SIMVASTATIN [Concomitant]
  4. VITAMIN D [Concomitant]

REACTIONS (4)
  - Pain in extremity [Recovered/Resolved]
  - Oedema peripheral [Recovered/Resolved]
  - Skin exfoliation [Unknown]
  - Sneezing [Unknown]
